FAERS Safety Report 8986421 (Version 2)
Quarter: 2013Q1

REPORT INFORMATION
  Report Type: Report from Study
  Country: JP (occurrence: JP)
  Receive Date: 20121227
  Receipt Date: 20130307
  Transmission Date: 20140127
  Serious: Yes (Disabling)
  Sender: FDA-Public Use
  Company Number: JP-EISAI INC-E2020-11784-CLI-JP

PATIENT
  Sex: Female

DRUGS (13)
  1. ARICEPT [Suspect]
     Indication: DEMENTIA ALZHEIMER^S TYPE
     Route: 048
     Dates: start: 20110830, end: 20110912
  2. ARICEPT [Suspect]
     Route: 048
     Dates: start: 20110913, end: 20120213
  3. ARICEPT [Suspect]
     Route: 048
     Dates: start: 20120214
  4. MEMARY [Suspect]
     Indication: DEMENTIA ALZHEIMER^S TYPE
     Route: 048
     Dates: start: 20120326
  5. SEROQUEL [Suspect]
     Indication: DEPRESSION
     Dosage: 25 MG X 1
     Route: 048
     Dates: start: 20120328
  6. PLAVIX [Concomitant]
     Dosage: 50 MG X 1
     Route: 048
     Dates: start: 20110723
  7. LANDSEN [Concomitant]
     Route: 048
  8. RHYTHMY [Concomitant]
     Route: 048
  9. DEPAS [Concomitant]
     Dosage: 0.5 MG X 1
     Route: 048
     Dates: start: 20090722
  10. LENDORMIN D [Concomitant]
     Indication: DEPRESSION
     Dosage: 0.25 MG X 1
     Route: 048
     Dates: start: 20120118
  11. GASTER D [Concomitant]
     Dosage: 20 MG X 1
     Route: 048
     Dates: start: 20101201
  12. ALOSENN [Concomitant]
     Route: 048
  13. MAGNESIUM OXIDE [Concomitant]
     Route: 048

REACTIONS (1)
  - Bulbar palsy [Unknown]
